FAERS Safety Report 7999921-2 (Version None)
Quarter: 2011Q4

REPORT INFORMATION
  Report Type: 
  Country: None (occurrence: None)
  Receive Date: 20111222
  Receipt Date: 20111214
  Transmission Date: 20120403
  Serious: No
  Sender: FDA-Public Use
  Company Number: US-BIOGENIDEC-2011BI047355

PATIENT
  Age: 48 Year
  Sex: Female

DRUGS (2)
  1. TYSABRI [Suspect]
     Indication: MULTIPLE SCLEROSIS
     Route: 042
     Dates: start: 20111028
  2. TYSABRI [Suspect]
     Route: 042
     Dates: start: 20070326, end: 20091021

REACTIONS (4)
  - GAIT DISTURBANCE [None]
  - MULTIPLE SCLEROSIS [None]
  - ASTHENIA [None]
  - MUSCULAR WEAKNESS [None]
